FAERS Safety Report 9812199 (Version 2)
Quarter: 2014Q2

REPORT INFORMATION
  Report Type: Spontaneous
  Country: SE (occurrence: SE)
  Receive Date: 20140112
  Receipt Date: 20140416
  Transmission Date: 20141212
  Serious: Yes (Hospitalization)
  Sender: FDA-Public Use
  Company Number: SE-AMGEN-SWESP2014001534

PATIENT
  Age: 56 Year
  Sex: Female

DRUGS (37)
  1. ENBREL [Suspect]
     Indication: RHEUMATOID ARTHRITIS
     Dosage: 50 MG, WEEKLY
     Route: 058
     Dates: start: 20110623, end: 20131210
  2. ESOMEPRAZOLE [Concomitant]
     Dosage: UNK
  3. KALCIPOS-D [Concomitant]
     Dosage: 500 MG/400 IU CHEWABLE TABLET
  4. BEHEPAN                            /00056201/ [Concomitant]
     Dosage: 1 MG, UNK
  5. FOLACIN                            /00024201/ [Concomitant]
     Dosage: 1 MG, UNK
  6. FURIX [Concomitant]
     Dosage: 40 MG, UNK
  7. TRIATEC                            /00116401/ [Concomitant]
     Dosage: 10 MG, UNK
  8. FEMANEST [Concomitant]
     Dosage: 2 MG, UNK
  9. PREDNISOLON                        /00016201/ [Concomitant]
     Dosage: UNK
  10. KETOGAN NOVUM [Concomitant]
     Dosage: 5 MG, UNK
  11. TRAMADOL [Concomitant]
     Dosage: UNK
  12. ALVEDON [Concomitant]
     Dosage: 1 G, UNK
  13. GABAPENTIN [Concomitant]
     Dosage: UNK
  14. SAROTEN [Concomitant]
     Dosage: 10 MG, UNK
  15. SYMBICORT TU [Concomitant]
     Dosage: UNK
     Route: 055
  16. SPIRIVA [Concomitant]
     Dosage: 18 UG, INHALATION POWDER
     Route: 055
  17. THERALEN [Concomitant]
     Dosage: 40 MG/ML, UNK
     Route: 048
  18. CILAXORAL [Concomitant]
     Dosage: 7.5 MG/ML, AS NECESSARY
     Route: 048
  19. BETAPRED [Concomitant]
     Dosage: 0.5 MG, AS NECESSARY
  20. RELIFEX [Concomitant]
     Dosage: 500 MG, AS NECESSARY
  21. MADOPARK [Concomitant]
     Dosage: 100MG/25MG AS NEEDED
  22. SOBRIL [Concomitant]
     Dosage: 10 MG, AS NECESSARY
  23. ZOPICLONE [Concomitant]
     Dosage: UNK
  24. BRICANYL TURBUHALER [Concomitant]
     Dosage: 0.5 MG, AS NEEDED//DOSE INHALATION POWDER
     Route: 055
  25. ACETYLCYSTEINE [Concomitant]
     Dosage: UNK
  26. CETIRIZINE [Concomitant]
     Dosage: UNK
  27. CATAPRESAN                         /00171101/ [Concomitant]
     Dosage: 75 UG, UNK
  28. COMBIVENT [Concomitant]
     Dosage: 0.5 MG/2.5 MG SOLUTION FOR NEBULISATOR
     Route: 055
  29. PRIMPERAN [Concomitant]
     Dosage: UNK
  30. MOVICOL                            /01625101/ [Concomitant]
     Dosage: POWDER TO ORAL SOLUTION IN DOSE BAG, AS NEEDED
  31. KLYX [Concomitant]
     Dosage: 1 MG/ML, RECTAL SOLUTION AS NEEDED
     Route: 054
  32. KLYX [Concomitant]
     Dosage: 250 MG/ML RECTAL SOLUTION, AS NEEDED
     Route: 054
  33. LOPERAMIDE [Concomitant]
     Dosage: UNK
  34. KALEORID [Concomitant]
     Dosage: 750 MG, AS NEEDED
  35. PROPAVAN [Concomitant]
     Dosage: 25 MG, AS NEEDED
  36. MOLLIPECT                          /00359501/ [Concomitant]
     Dosage: 0.5 MG/ML, AS NECESSARY
     Route: 048
  37. MOLLIPECT                          /00359501/ [Concomitant]
     Dosage: 1 MG/ML, AS NECESSARY
     Route: 048

REACTIONS (2)
  - Alveolitis [Unknown]
  - Lung infection [Unknown]
